FAERS Safety Report 4331184-1 (Version None)
Quarter: 2004Q1

REPORT INFORMATION
  Report Type: 
  Country: None (occurrence: None)
  Receive Date: 20040331
  Receipt Date: 20040311
  Transmission Date: 20041129
  Serious: Yes (Other)
  Sender: FDA-Public Use
  Company Number: CA_040306737

PATIENT
  Age: 73 Year
  Sex: Male

DRUGS (9)
  1. PERMAX [Suspect]
     Indication: PARKINSON'S DISEASE
     Dosage: 1 MG/1 DAY
     Dates: start: 19970101, end: 20040304
  2. ARTANE [Concomitant]
  3. COMPERIDONE [Concomitant]
  4. CLONAZEPAM [Concomitant]
  5. METOPROLOL [Concomitant]
  6. ALTACE [Concomitant]
  7. ENTROPHEN (ACETYLSALICYLIC ACID) [Concomitant]
  8. SINEMET CR [Concomitant]
  9. VITAMIN B-12 [Concomitant]

REACTIONS (2)
  - MITRAL VALVE DISEASE [None]
  - RIGHT VENTRICULAR SYSTOLIC PRESSURE INCREASED [None]
